FAERS Safety Report 15156731 (Version 1)
Quarter: 2018Q3

REPORT INFORMATION
  Report Type: Spontaneous
  Country: IT (occurrence: IT)
  Receive Date: 20180717
  Receipt Date: 20180717
  Transmission Date: 20181010
  Serious: Yes (Hospitalization)
  Sender: FDA-Public Use
  Company Number: IT-UCBSA-2018031732

PATIENT
  Age: 32 Year
  Sex: Male

DRUGS (1)
  1. KEPPRA [Suspect]
     Active Substance: LEVETIRACETAM
     Indication: EPILEPSY
     Dosage: 1000 MG, UNK
     Route: 048
     Dates: start: 20180608, end: 20180609

REACTIONS (4)
  - Aggression [Recovering/Resolving]
  - Drug intolerance [Recovering/Resolving]
  - Psychomotor hyperactivity [Recovering/Resolving]
  - Confusional state [Recovering/Resolving]

NARRATIVE: CASE EVENT DATE: 20180609
